FAERS Safety Report 9094839 (Version 1)
Quarter: 2013Q1

REPORT INFORMATION
  Report Type: Spontaneous
  Country: US (occurrence: None)
  Receive Date: 20130214
  Receipt Date: 20130214
  Transmission Date: 20140127
  Serious: Yes (Other)
  Sender: FDA-Public Use
  Company Number: None

PATIENT
  Sex: 0

DRUGS (1)
  1. HYDROGEN PEROXIDE [Suspect]
     Dosage: DID NOT REACH PATIENT

REACTIONS (2)
  - Chemical injury [None]
  - Product closure issue [None]
